FAERS Safety Report 14602300 (Version 2)
Quarter: 2020Q4

REPORT INFORMATION
  Report Type: Spontaneous
  Country: DK (occurrence: DK)
  Receive Date: 20180306
  Receipt Date: 20201223
  Transmission Date: 20210113
  Serious: Yes (Death, Hospitalization, Other)
  Sender: FDA-Public Use
  Company Number: DK-BRISTOL-MYERS SQUIBB COMPANY-BMS-2018-020940

PATIENT
  Age: 70 Year
  Sex: Male
  Weight: 87 kg

DRUGS (4)
  1. OPDIVO [Suspect]
     Active Substance: NIVOLUMAB
     Dosage: 2 MILLIGRAM/KILOGRAM
     Route: 042
     Dates: start: 201611, end: 201712
  2. OPDIVO [Suspect]
     Active Substance: NIVOLUMAB
     Dosage: 260 MILLIGRAM, INTERVAL OF 2 WEEKS
     Route: 042
     Dates: start: 20170719, end: 20171124
  3. OPDIVO [Suspect]
     Active Substance: NIVOLUMAB
     Indication: LUNG ADENOCARCINOMA
     Dosage: 276 MILLIGRAM, INTERVAL OF 3 WEEKS
     Route: 042
     Dates: start: 20170719, end: 20171211
  4. PREDNISOLONE. [Suspect]
     Active Substance: PREDNISOLONE
     Indication: PRODUCT USED FOR UNKNOWN INDICATION
     Dosage: 100 MILLIGRAM
     Route: 048
     Dates: start: 201711, end: 201802

REACTIONS (8)
  - Interstitial lung disease [Fatal]
  - Metastases to lung [Unknown]
  - Hepatitis [Unknown]
  - Pelvic inflammatory disease [Unknown]
  - Sepsis [Fatal]
  - Pneumocystis jirovecii pneumonia [Fatal]
  - Pneumonitis [Unknown]
  - Respiratory failure [Fatal]

NARRATIVE: CASE EVENT DATE: 20171116
